FAERS Safety Report 7769404-3 (Version None)
Quarter: 2011Q3

REPORT INFORMATION
  Report Type: 
  Country: None (occurrence: None)
  Receive Date: 20110922
  Receipt Date: 20110516
  Transmission Date: 20111222
  Serious: No
  Sender: FDA-Public Use
  Company Number: US-ASTRAZENECA-2011SE29641

PATIENT
  Age: 90 Year
  Sex: Female
  Weight: 45.4 kg

DRUGS (8)
  1. AMLODIPINE [Concomitant]
     Indication: HYPERTENSION
  2. DIGOXIN [Concomitant]
     Indication: HEART RATE INCREASED
  3. SEROQUEL XR [Suspect]
     Indication: AGGRESSION
     Route: 048
     Dates: end: 20100901
  4. SEROQUEL XR [Suspect]
     Route: 048
     Dates: end: 20100901
  5. SYNTHROID [Concomitant]
  6. CATAPRES [Concomitant]
     Indication: HYPERTENSION
  7. THYROID TAB [Concomitant]
     Indication: HYPOTHYROIDISM
  8. ATIVAN [Concomitant]

REACTIONS (5)
  - URINARY TRACT INFECTION [None]
  - PAIN [None]
  - CONFUSIONAL STATE [None]
  - OFF LABEL USE [None]
  - HALLUCINATION [None]
